FAERS Safety Report 9222674 (Version 1)
Quarter: 2013Q2

REPORT INFORMATION
  Report Type: Spontaneous
  Country: FR (occurrence: FR)
  Receive Date: 20130410
  Receipt Date: 20130410
  Transmission Date: 20140414
  Serious: Yes (Hospitalization)
  Sender: FDA-Public Use
  Company Number: FR-PFIZER INC-2013106495

PATIENT
  Age: 75 Year
  Sex: Male

DRUGS (17)
  1. DALACINE [Suspect]
     Indication: DIABETIC FOOT
     Dosage: 600 MG, 3X/DAY
     Dates: start: 20130218
  2. NOVONORM [Suspect]
     Dosage: 3 MG, 2X/DAY
     Dates: start: 20130218, end: 20130312
  3. LANTUS [Concomitant]
  4. NOVORAPID [Concomitant]
  5. HYPERIUM [Concomitant]
  6. PREVISCAN [Concomitant]
  7. KARDEGIC [Concomitant]
  8. TAHOR [Concomitant]
  9. LOXEN [Concomitant]
  10. INIPOMP [Concomitant]
  11. LASILIX [Concomitant]
  12. CASODEX [Concomitant]
  13. ELIGARD [Concomitant]
  14. DUROGESIC [Concomitant]
  15. OXYNORM [Concomitant]
  16. DUPHALAC [Concomitant]
  17. HYDROSOL POLYVITAMINE ^ROCHE^ [Concomitant]

REACTIONS (2)
  - Petechiae [Recovered/Resolved]
  - Purpura [Recovered/Resolved]
